FAERS Safety Report 8875829 (Version 5)
Quarter: 2013Q1

REPORT INFORMATION
  Report Type: Spontaneous
  Country: US (occurrence: US)
  Receive Date: 20121023
  Receipt Date: 20130308
  Transmission Date: 20140127
  Serious: Yes (Hospitalization, Other)
  Sender: FDA-Public Use
  Company Number: US-009507513-1202USA02709

PATIENT
  Sex: Female
  Weight: 61.22 kg

DRUGS (3)
  1. FOSAMAX [Suspect]
     Indication: OSTEOPENIA
     Dosage: 5 MG, UNK
     Route: 048
     Dates: start: 199705
  2. FOSAMAX [Suspect]
     Indication: OSTEOPOROSIS
     Dosage: 35 MG, UNK
     Route: 048
     Dates: start: 2003
  3. VITAMIN D (UNSPECIFIED) [Suspect]
     Dosage: 0-2000 MG UNK
     Dates: start: 1996

REACTIONS (18)
  - Femur fracture [Unknown]
  - Open reduction of fracture [Unknown]
  - Anaemia postoperative [Unknown]
  - Endometrial adenocarcinoma [Unknown]
  - Hysterectomy [Unknown]
  - Salpingo-oophorectomy bilateral [Unknown]
  - Lymphadenectomy [Unknown]
  - Bladder repair [Unknown]
  - Appendicectomy [Unknown]
  - Low turnover osteopathy [Unknown]
  - Hypertension [Unknown]
  - Blood cholesterol increased [Unknown]
  - Arthritis [Unknown]
  - Fluid retention [Unknown]
  - Carpal tunnel syndrome [Unknown]
  - Type 2 diabetes mellitus [Unknown]
  - Induration [Unknown]
  - Pain in extremity [Unknown]
